FAERS Safety Report 9263166 (Version 1)
Quarter: 2013Q2

REPORT INFORMATION
  Report Type: Spontaneous
  Country: US (occurrence: None)
  Receive Date: 20130426
  Receipt Date: 20130426
  Transmission Date: 20140414
  Serious: Yes (Hospitalization)
  Sender: FDA-Public Use
  Company Number: None

PATIENT
  Age: 38 Year
  Sex: Female
  Weight: 64.86 kg

DRUGS (1)
  1. ENBREL [Suspect]

REACTIONS (4)
  - Hypersensitivity [None]
  - Injection site hypersensitivity [None]
  - Inflammation [None]
  - Nodule [None]
